FAERS Safety Report 10921298 (Version 1)
Quarter: 2015Q1

REPORT INFORMATION
  Report Type: Spontaneous
  Country: US (occurrence: None)
  Receive Date: 20150313
  Receipt Date: 20150313
  Transmission Date: 20150721
  Serious: Yes (Life-Threatening)
  Sender: FDA-Public Use
  Company Number: None

PATIENT
  Age: 25 Year
  Sex: Female
  Weight: 90.72 kg

DRUGS (2)
  1. TUBERSOL [Suspect]
     Active Substance: TUBERCULIN PURIFIED PROTEIN DERIVATIVE
     Indication: TUBERCULOSIS
     Route: 023
     Dates: start: 20150309
  2. ALCOHOL PREP PAD FROM MOORE MEDICAL LOT CYDU8-04 [Concomitant]

REACTIONS (2)
  - Anaphylactic reaction [None]
  - Product quality issue [None]

NARRATIVE: CASE EVENT DATE: 20150309
